FAERS Safety Report 8173213-3 (Version None)
Quarter: 2012Q1

REPORT INFORMATION
  Report Type: 
  Country: None (occurrence: None)
  Receive Date: 20120229
  Receipt Date: 20110830
  Transmission Date: 20120608
  Serious: No
  Sender: FDA-Public Use
  Company Number: US-GLAXOSMITHKLINE-A0943590A

PATIENT
  Sex: Female
  Weight: 95.5 kg

DRUGS (8)
  1. ZYRTEC [Concomitant]
     Indication: MULTIPLE ALLERGIES
     Dosage: 10MG PER DAY
     Route: 048
  2. ZOMIG [Concomitant]
     Indication: MIGRAINE
     Route: 048
  3. MAGNESIUM [Concomitant]
     Indication: MIGRAINE
     Route: 065
  4. SUMATRIPTAN [Suspect]
     Indication: MIGRAINE
     Dosage: 6MG AS REQUIRED
     Route: 058
     Dates: start: 20100101
  5. GSK AUTOINJECTOR [Suspect]
     Indication: MIGRAINE
     Route: 058
     Dates: start: 20100101
  6. MULTI-VITAMIN [Concomitant]
     Indication: MEDICAL DIET
     Dosage: 1TAB PER DAY
     Route: 048
  7. ZONISAMIDE [Concomitant]
     Indication: MIGRAINE PROPHYLAXIS
     Dosage: 200MGD PER DAY
  8. MELATONIN [Concomitant]
     Indication: SLEEP DISORDER
     Dosage: 1MG PER DAY
     Route: 048

REACTIONS (4)
  - DRUG ADMINISTRATION ERROR [None]
  - PRODUCT QUALITY ISSUE [None]
  - INJECTION SITE HAEMATOMA [None]
  - DRUG INEFFECTIVE [None]
